FAERS Safety Report 19611095 (Version 1)
Quarter: 2021Q3

REPORT INFORMATION
  Report Type: Spontaneous
  Country: GB (occurrence: GB)
  Receive Date: 20210726
  Receipt Date: 20210726
  Transmission Date: 20211014
  Serious: Yes (Other)
  Sender: FDA-Public Use
  Company Number: GB-MYLANLABS-2021M1045916

PATIENT
  Age: 74 Year
  Sex: Male
  Weight: 63 kg

DRUGS (9)
  1. ATORVASTATIN [Concomitant]
     Active Substance: ATORVASTATIN
     Dosage: 1 DOSAGE FORM, QD
     Dates: start: 20201115
  2. CITALOPRAM [Concomitant]
     Active Substance: CITALOPRAM HYDROBROMIDE
     Dosage: 1 DOSAGE FORM, QD
     Dates: start: 20210514, end: 20210611
  3. ASPIRIN                            /00002701/ [Concomitant]
     Active Substance: ASPIRIN
     Dosage: 1 DOSAGE FORM, QD
     Dates: start: 20201115
  4. SILDENAFIL. [Suspect]
     Active Substance: SILDENAFIL
     Indication: PRODUCT USED FOR UNKNOWN INDICATION
     Dosage: 100 MILLIGRAM, PRN
     Dates: start: 20201115
  5. FYBOGEL [Concomitant]
     Active Substance: HERBALS\PLANTAGO OVATA SEED
     Dosage: USE AS DIRECTED
     Dates: start: 20210521, end: 20210605
  6. SALBUTAMOL [Concomitant]
     Active Substance: ALBUTEROL
     Dosage: 1 TO 2 PUFFS UP TO FOUR TIMES DAILY AS REQUIRED
     Dates: start: 20201115
  7. BISOPROLOL [Concomitant]
     Active Substance: BISOPROLOL
     Dosage: 1 DOSAGE FORM, QD
     Dates: start: 20201115
  8. TRIMBOW [Concomitant]
     Active Substance: BECLOMETHASONE DIPROPIONATE\FORMOTEROL FUMARATE\GLYCOPYRROLATE
     Dosage: 2 DOSAGE FORM, BID
     Route: 055
     Dates: start: 20201115
  9. EPROSARTAN [Concomitant]
     Active Substance: EPROSARTAN
     Dosage: 1 DOSAGE FORM, QD
     Dates: start: 20201115

REACTIONS (1)
  - Angina pectoris [Unknown]

NARRATIVE: CASE EVENT DATE: 20210714
